FAERS Safety Report 12604434 (Version 1)
Quarter: 2016Q3

REPORT INFORMATION
  Report Type: Spontaneous
  Country: US (occurrence: US)
  Receive Date: 20160728
  Receipt Date: 20160728
  Transmission Date: 20161109
  Serious: No
  Sender: FDA-Public Use
  Company Number: US-GLAXOSMITHKLINE-US2016104355

PATIENT
  Sex: Female

DRUGS (4)
  1. BREO ELLIPTA [Suspect]
     Active Substance: FLUTICASONE FUROATE\VILANTEROL TRIFENATATE
     Indication: LUNG NEOPLASM MALIGNANT
  2. FLUTICASONE PROPIONATE NASAL SPRAY [Concomitant]
     Active Substance: FLUTICASONE PROPIONATE
  3. ASPIRIN. [Concomitant]
     Active Substance: ASPIRIN
  4. BREO ELLIPTA [Suspect]
     Active Substance: FLUTICASONE FUROATE\VILANTEROL TRIFENATATE
     Indication: CHRONIC OBSTRUCTIVE PULMONARY DISEASE
     Dosage: 1 PUFF(S), QD
     Route: 048

REACTIONS (14)
  - Device use error [Unknown]
  - Cough [Unknown]
  - Headache [Unknown]
  - Eye pain [Unknown]
  - Productive cough [Unknown]
  - Drug dose omission [Unknown]
  - Off label use [Unknown]
  - Immune system disorder [Unknown]
  - Chest pain [Unknown]
  - Saliva altered [Unknown]
  - Pyrexia [Unknown]
  - Dyspnoea [Unknown]
  - Rhinorrhoea [Unknown]
  - Sensory disturbance [Unknown]
